FAERS Safety Report 9702923 (Version 4)
Quarter: 2014Q1

REPORT INFORMATION
  Report Type: Spontaneous
  Country: AU (occurrence: AU)
  Receive Date: 20131121
  Receipt Date: 20140102
  Transmission Date: 20141002
  Serious: Yes (Life-Threatening, Hospitalization, Other)
  Sender: FDA-Public Use
  Company Number: AU-009507513-1311AUS008178

PATIENT
  Age: 66 Year
  Sex: Male

DRUGS (1)
  1. ESMERON [Suspect]
     Indication: SURGERY
     Dosage: 50 MG DIALY
     Dates: start: 20131118, end: 20131118

REACTIONS (4)
  - Cardiovascular disorder [Unknown]
  - Anaphylactic reaction [Unknown]
  - Mechanical ventilation [Recovered/Resolved]
  - Endotracheal intubation [Recovered/Resolved]
